FAERS Safety Report 9166262 (Version 1)
Quarter: 2013Q1

REPORT INFORMATION
  Report Type: Spontaneous
  Country: CO (occurrence: CO)
  Receive Date: 20130315
  Receipt Date: 20130315
  Transmission Date: 20140127
  Serious: Yes (Other)
  Sender: FDA-Public Use
  Company Number: CO-PFIZER INC-2013087555

PATIENT
  Age: 84 Year
  Sex: Male

DRUGS (5)
  1. CARDURAN [Suspect]
     Indication: PROSTATOMEGALY
     Dosage: 4 MG, 1X/DAY
     Route: 048
     Dates: start: 2003
  2. INSULIN [Suspect]
     Indication: DIABETES MELLITUS
     Dosage: 20MG IN THE MORNING AND 10MG AT NIGHT
     Route: 058
     Dates: start: 2003
  3. ATORVASTATIN [Concomitant]
     Indication: HYPERTENSION
     Dosage: 20 MG, 1X/DAY
     Route: 048
     Dates: start: 1993
  4. LOSARTAN [Concomitant]
     Indication: DIABETES MELLITUS
     Dosage: UNK, 1X/DAY
     Route: 048
     Dates: start: 2003
  5. METOPROLOL [Concomitant]
     Indication: BLOOD PRESSURE ABNORMAL
     Dosage: 20 MG, 1X/DAY
     Route: 048
     Dates: start: 2003

REACTIONS (2)
  - Cataract [Not Recovered/Not Resolved]
  - Visual acuity reduced [Not Recovered/Not Resolved]
